FAERS Safety Report 15653017 (Version 14)
Quarter: 2023Q2

REPORT INFORMATION
  Report Type: Spontaneous
  Country: DE (occurrence: DE)
  Receive Date: 20181123
  Receipt Date: 20230519
  Transmission Date: 20230722
  Serious: Yes (Life-Threatening, Hospitalization, Disabling, Other)
  Sender: FDA-Public Use
  Company Number: PHHY2018DE159608

PATIENT
  Age: 73 Year
  Sex: Male
  Weight: 75.5 kg

DRUGS (20)
  1. VALSARTAN [Suspect]
     Active Substance: VALSARTAN
     Indication: Hypertension
     Dosage: 160 MG, QD (1-0-0) (ONCE IN THE MORNING)
     Route: 065
  2. VALSARTAN [Suspect]
     Active Substance: VALSARTAN
     Indication: Hypertension
     Dosage: 160 MG
     Route: 065
     Dates: start: 2011, end: 2016
  3. VALSARTAN [Suspect]
     Active Substance: VALSARTAN
     Dosage: UNK
     Route: 065
     Dates: start: 2012
  4. VALSARTAN [Suspect]
     Active Substance: VALSARTAN
     Indication: Hypertension
     Dosage: 160 MG
     Route: 065
  5. VALSARTAN [Suspect]
     Active Substance: VALSARTAN
     Indication: Hypertension
     Dosage: 160 MG
     Route: 065
  6. NEBIVOLOL [Concomitant]
     Active Substance: NEBIVOLOL
     Indication: Hypertension
     Dosage: 5 MG
     Route: 065
     Dates: end: 2016
  7. NEBIVOLOL [Concomitant]
     Active Substance: NEBIVOLOL
     Dosage: 2.5 MG
     Route: 065
  8. METAMIZOLE [Concomitant]
     Active Substance: METAMIZOLE
     Indication: Product used for unknown indication
     Dosage: 30 DRP, QID
     Route: 065
  9. PLANUM [Concomitant]
     Indication: Product used for unknown indication
     Dosage: UNK
     Route: 065
     Dates: start: 20160421
  10. NOVALGIN [Concomitant]
     Indication: Postoperative care
     Dosage: 40 DRP, ON DEMAND
     Route: 065
     Dates: start: 20160415
  11. ALIZAPRIDE HYDROCHLORIDE [Concomitant]
     Active Substance: ALIZAPRIDE HYDROCHLORIDE
     Indication: Product used for unknown indication
     Dosage: UNK, TID (1-1-1)
     Route: 065
  12. MCP [Concomitant]
     Active Substance: METOCLOPRAMIDE HYDROCHLORIDE
     Indication: Product used for unknown indication
     Dosage: UNK, TID (1-1-1) (CONCENTRATION 10)
     Route: 065
  13. MUCOFALK [Concomitant]
     Indication: Constipation prophylaxis
     Dosage: UNK
     Route: 065
     Dates: start: 2016
  14. BEPANTHEN [Concomitant]
     Indication: Product used for unknown indication
     Dosage: UNK
     Route: 065
  15. IBUPROFEN [Concomitant]
     Active Substance: IBUPROFEN
     Indication: Postoperative care
     Dosage: 600 MG, PRN
     Route: 065
  16. TEMAZEPAM [Concomitant]
     Active Substance: TEMAZEPAM
     Indication: Product used for unknown indication
     Dosage: UNK, QD (0-0-0-1)
     Route: 065
  17. METAMIZOLE [Concomitant]
     Active Substance: METAMIZOLE
     Indication: Product used for unknown indication
     Dosage: 30 DRP, QID (1-1-1-1)
     Route: 065
  18. RANITIDINE HYDROCHLORIDE [Concomitant]
     Active Substance: RANITIDINE HYDROCHLORIDE
     Indication: Product used for unknown indication
     Dosage: 300 MG, QD (1-0-0)
     Route: 065
  19. NEBIVOLOL [Concomitant]
     Active Substance: NEBIVOLOL
     Indication: Hypertension
     Dosage: UNK
     Route: 065
  20. ZOLPIDEM [Concomitant]
     Active Substance: ZOLPIDEM TARTRATE
     Indication: Product used for unknown indication
     Dosage: UNK
     Route: 065

REACTIONS (39)
  - Abdominal discomfort [Not Recovered/Not Resolved]
  - Anal squamous cell carcinoma [Recovered/Resolved]
  - Proctalgia [Recovered/Resolved]
  - Dyschezia [Recovered/Resolved]
  - Stevens-Johnson syndrome [Unknown]
  - Feeling abnormal [Unknown]
  - Defaecation urgency [Not Recovered/Not Resolved]
  - Anal ulcer [Unknown]
  - Haematochezia [Unknown]
  - Skin maceration [Unknown]
  - Lymphocyte count decreased [Unknown]
  - Glaucoma [Unknown]
  - Mental disorder [Not Recovered/Not Resolved]
  - Anxiety disorder [Not Recovered/Not Resolved]
  - Fear of death [Not Recovered/Not Resolved]
  - Neutrophil count increased [Unknown]
  - Monocyte count increased [Unknown]
  - C-reactive protein increased [Unknown]
  - Oropharyngeal pain [Unknown]
  - Pyrexia [Unknown]
  - Radiation skin injury [Unknown]
  - Dermatitis [Unknown]
  - Inflammation [Unknown]
  - Haemorrhoids [Unknown]
  - Anorectal discomfort [Unknown]
  - Anal pruritus [Unknown]
  - Abdominal pain upper [Unknown]
  - Gastrointestinal motility disorder [Unknown]
  - Anal infection [Unknown]
  - Anal inflammation [Unknown]
  - Adjustment disorder [Not Recovered/Not Resolved]
  - Sleep disorder [Not Recovered/Not Resolved]
  - Asthenia [Not Recovered/Not Resolved]
  - Loss of libido [Not Recovered/Not Resolved]
  - Obsessive thoughts [Not Recovered/Not Resolved]
  - Anxiety [Not Recovered/Not Resolved]
  - Depressed mood [Not Recovered/Not Resolved]
  - Fear [Unknown]
  - Wound [Unknown]

NARRATIVE: CASE EVENT DATE: 20140101
